FAERS Safety Report 19882374 (Version 4)
Quarter: 2021Q4

REPORT INFORMATION
  Report Type: Report from Study
  Country: EG (occurrence: EG)
  Receive Date: 20210925
  Receipt Date: 20211123
  Transmission Date: 20220304
  Serious: Yes (Other)
  Sender: FDA-Public Use
  Company Number: NVSC2021EG213834

PATIENT
  Sex: Female

DRUGS (5)
  1. ELTROMBOPAG OLAMINE [Suspect]
     Active Substance: ELTROMBOPAG OLAMINE
     Indication: Thrombocytopenia
     Dosage: 25 MG, BID (STARTED TWO, THREE OR FOUR YEARS AGO; STOPPED ONE YEAR AGO)
     Route: 048
  2. ELTROMBOPAG OLAMINE [Suspect]
     Active Substance: ELTROMBOPAG OLAMINE
     Dosage: 50 MG, QD (STARTED ONE YEAR AGO)
     Route: 048
  3. INSULIN HUMAN [Concomitant]
     Active Substance: INSULIN HUMAN
     Indication: Product used for unknown indication
     Dosage: 30 UNITS IN THE MORNING AND 30 UNITS AT NIGHT, STARTED TOO LONG AGO
     Route: 065
  4. INSULIN HUMAN [Concomitant]
     Active Substance: INSULIN HUMAN
     Indication: Blood glucose increased
     Dosage: 30 UNITS IN THE MORNING AND 30 UNITS AT NIGHT, TAKEN ONLY WHEN BLOOD GLUCOSE LEVEL EXCEEDS 400 MG/DL
     Route: 065
  5. NOVORAPID [Concomitant]
     Active Substance: INSULIN ASPART
     Indication: Blood glucose increased
     Route: 065

REACTIONS (8)
  - Dermatitis allergic [Not Recovered/Not Resolved]
  - Drug hypersensitivity [Recovering/Resolving]
  - Platelet count decreased [Recovering/Resolving]
  - Product storage error [Recovered/Resolved]
  - Poor quality product administered [Recovered/Resolved]
  - Drug interaction [Unknown]
  - Inappropriate schedule of product administration [Unknown]
  - Drug ineffective [Not Recovered/Not Resolved]
